FAERS Safety Report 17306934 (Version 1)
Quarter: 2020Q1

REPORT INFORMATION
  Report Type: Spontaneous
  Country: US (occurrence: US)
  Receive Date: 20200123
  Receipt Date: 20200123
  Transmission Date: 20200409
  Serious: Yes (Hospitalization, Other)
  Sender: FDA-Public Use
  Company Number: US-NOVAST LABORATORIES LTD.-2020NOV000009

PATIENT
  Age: 11 Month
  Sex: Female
  Weight: 8.5 kg

DRUGS (1)
  1. LIDOCAINE. [Suspect]
     Active Substance: LIDOCAINE
     Indication: DERMATITIS DIAPER
     Dosage: 4% LIDOCAINE CREAM APPLIED MULTIPLE TIMES DURING THE DAY
     Route: 061

REACTIONS (2)
  - Systemic toxicity [Recovered/Resolved]
  - Status epilepticus [Recovered/Resolved]
